FAERS Safety Report 18961543 (Version 3)
Quarter: 2021Q3

REPORT INFORMATION
  Report Type: Spontaneous
  Country: GB (occurrence: GB)
  Receive Date: 20210303
  Receipt Date: 20210902
  Transmission Date: 20211014
  Serious: Yes (Other)
  Sender: FDA-Public Use
  Company Number: GB-LUPIN PHARMACEUTICALS INC.-2021-02302

PATIENT
  Age: 36 Year
  Sex: Female

DRUGS (8)
  1. NORETHISTERONE [Interacting]
     Active Substance: NORETHINDRONE
     Indication: POLYCYSTIC OVARIES
     Dosage: 5 MILLIGRAM, QD FOR 3 WEEKS EACH MONTH
     Route: 065
     Dates: start: 2010, end: 201405
  2. NORETHISTERONE [Interacting]
     Active Substance: NORETHINDRONE
     Dosage: 5 MILLIGRAM, QD
     Route: 065
     Dates: start: 201407
  3. DESOGESTREL [Interacting]
     Active Substance: DESOGESTREL
     Indication: POLYCYSTIC OVARIES
     Dosage: 75 MICROGRAM, QD (75 DAYS PRIOR TO STARTING THE DAAS)
     Route: 065
  4. SOFOSBUVIR [Interacting]
     Active Substance: SOFOSBUVIR
     Indication: ANTIVIRAL TREATMENT
     Dosage: 400 MILLIGRAM, QD
     Route: 048
     Dates: start: 201408
  5. RIBAVIRIN. [Interacting]
     Active Substance: RIBAVIRIN
     Indication: ANTIVIRAL TREATMENT
     Dosage: 600 MILLIGRAM, QD
     Route: 048
     Dates: start: 201408
  6. DACLATASVIR. [Interacting]
     Active Substance: DACLATASVIR
     Indication: ANTIVIRAL TREATMENT
     Dosage: 60 MILLIGRAM, QD
     Route: 048
     Dates: start: 201408
  7. LEVOTHYROXINE. [Concomitant]
     Active Substance: LEVOTHYROXINE
     Indication: PRODUCT USED FOR UNKNOWN INDICATION
     Dosage: 150 MICROGRAM, QD
     Route: 065
  8. LEVONORGESTREL AND ETHINYL ESTRADIOL [Suspect]
     Active Substance: ETHINYL ESTRADIOL\LEVONORGESTREL
     Indication: POLYCYSTIC OVARIES
     Dosage: UNK, QD (11 DAYS PRIOR TO STARTING ANTI?HCV THERAPY)
     Route: 065
     Dates: start: 20140731

REACTIONS (2)
  - Drug interaction [Unknown]
  - Drug-induced liver injury [Not Recovered/Not Resolved]
